FAERS Safety Report 10240573 (Version 1)
Quarter: 2014Q2

REPORT INFORMATION
  Report Type: Spontaneous
  Country: GB (occurrence: GB)
  Receive Date: 20140617
  Receipt Date: 20140617
  Transmission Date: 20141212
  Serious: Yes (Life-Threatening, Hospitalization)
  Sender: FDA-Public Use
  Company Number: GB-AMGEN INC.-GBRSP2014043853

PATIENT
  Age: 56 Year
  Sex: Male

DRUGS (9)
  1. PROLIA [Suspect]
     Indication: OSTEOPOROSIS
     Dosage: 60 MG, UNK
     Route: 058
     Dates: start: 20140409
  2. CALCIUM [Concomitant]
     Dosage: UNK
  3. MENADIOL [Concomitant]
  4. MYCOPHENOLATE MOFETIL [Concomitant]
  5. RANITIDINE [Concomitant]
  6. TACROLIMUS [Concomitant]
  7. VITAMIN A                          /00056001/ [Concomitant]
  8. VITAMIN D                          /00107901/ [Concomitant]
     Dosage: UNK
  9. VITAMIN E                          /00110501/ [Concomitant]

REACTIONS (2)
  - Tetany [Unknown]
  - Hypocalcaemia [Recovering/Resolving]
